FAERS Safety Report 15147607 (Version 5)
Quarter: 2018Q4

REPORT INFORMATION
  Report Type: Spontaneous
  Country: US (occurrence: US)
  Receive Date: 20180716
  Receipt Date: 20181105
  Transmission Date: 20190204
  Serious: No
  Sender: FDA-Public Use
  Company Number: US-PFIZER INC-2018280007

PATIENT
  Age: 77 Year
  Sex: Male
  Weight: 78.2 kg

DRUGS (1)
  1. REVATIO [Suspect]
     Active Substance: SILDENAFIL CITRATE
     Indication: PULMONARY ARTERIAL HYPERTENSION
     Dosage: 40 MG, 3X/DAY (20 MG 2 TABLETS BY MOUTH THREE TIMES A DAY)
     Route: 048
     Dates: end: 20180709

REACTIONS (3)
  - Intentional product misuse [Unknown]
  - Prescribed overdose [Unknown]
  - Dyspnoea [Unknown]
